FAERS Safety Report 11813990 (Version 1)
Quarter: 2015Q4

REPORT INFORMATION
  Report Type: Spontaneous
  Country: US (occurrence: US)
  Receive Date: 20151209
  Receipt Date: 20151209
  Transmission Date: 20160305
  Serious: Yes (Other)
  Sender: FDA-Public Use
  Company Number: US-AMGEN-USASP2015129643

PATIENT
  Age: 66 Year
  Sex: Female

DRUGS (1)
  1. ENBREL [Suspect]
     Active Substance: ETANERCEPT
     Indication: RHEUMATOID ARTHRITIS
     Dosage: 50 MG, QWK
     Route: 065
     Dates: start: 2006

REACTIONS (5)
  - Fear of injection [Unknown]
  - Asthenia [Unknown]
  - Alopecia [Recovered/Resolved]
  - Rheumatoid arthritis [Recovering/Resolving]
  - Trichorrhexis [Recovered/Resolved]

NARRATIVE: CASE EVENT DATE: 2006
